FAERS Safety Report 10159540 (Version 1)
Quarter: 2014Q2

REPORT INFORMATION
  Report Type: Spontaneous
  Country: BR (occurrence: BR)
  Receive Date: 20140508
  Receipt Date: 20140508
  Transmission Date: 20141212
  Serious: Yes (Hospitalization)
  Sender: FDA-Public Use
  Company Number: BR-ASTRAZENECA-2014SE30226

PATIENT
  Age: 70 Year
  Sex: Male
  Weight: 70 kg

DRUGS (6)
  1. CRESTOR [Suspect]
     Indication: HYPERCHOLESTEROLAEMIA
     Route: 048
  2. CRESTOR [Suspect]
     Indication: HYPERCHOLESTEROLAEMIA
     Route: 048
     Dates: end: 201403
  3. CRESTOR [Suspect]
     Indication: HYPERCHOLESTEROLAEMIA
     Route: 048
  4. CRESTOR [Suspect]
     Indication: HYPERCHOLESTEROLAEMIA
     Route: 048
  5. BRILINTA [Suspect]
     Indication: CATHETER PLACEMENT
     Route: 048
     Dates: start: 201403
  6. SOMALGIN [Concomitant]
     Indication: CATHETER PLACEMENT
     Dosage: DAILY
     Route: 048
     Dates: start: 201403

REACTIONS (4)
  - Arterial occlusive disease [Recovered/Resolved]
  - Bleeding time prolonged [Not Recovered/Not Resolved]
  - Medication error [Recovered/Resolved]
  - Off label use [Recovered/Resolved]
